FAERS Safety Report 5098987-X (Version None)
Quarter: 2006Q3

REPORT INFORMATION
  Report Type: 
  Country: None (occurrence: None)
  Receive Date: 20060907
  Receipt Date: 20060830
  Transmission Date: 20061208
  Serious: Yes (Hospitalization)
  Sender: FDA-Public Use
  Company Number: US-BOEHRINGER INGELHEIM PHARMACEUTICALS, INC.-2006-BP-10108BP

PATIENT
  Sex: Female

DRUGS (17)
  1. MOBIC [Suspect]
     Indication: JUVENILE ARTHRITIS
     Route: 048
     Dates: start: 20030401, end: 20060301
  2. MOBIC [Suspect]
     Route: 048
     Dates: start: 20060101
  3. METHOTREXATE [Suspect]
     Route: 048
     Dates: start: 19910101, end: 20060301
  4. ENBREL [Suspect]
     Indication: JUVENILE ARTHRITIS
     Route: 058
     Dates: start: 20021101
  5. PREDNISONE TAB [Concomitant]
     Dates: start: 19910101
  6. FOLIC ACID [Concomitant]
     Dates: start: 19910101
  7. DEXTROPROXYPHENE NAPSILATE WITH ACETOMIOPHEN [Concomitant]
     Dates: start: 20030401
  8. ACTONEL [Concomitant]
     Dates: start: 20030401
  9. PANTOPRAZOLE SODIUM [Concomitant]
     Dates: start: 20011201
  10. CALCIUM GLUCONATE [Concomitant]
     Dates: start: 20030101
  11. ALPRAZOLAM [Concomitant]
  12. ERGOCALCIFEROL [Concomitant]
     Dates: start: 20030101
  13. ALPRAZOLAM [Concomitant]
     Route: 048
  14. ASPIRIN [Concomitant]
  15. ENOXAPARIN SODIUM [Concomitant]
  16. ACETAMINOPHEN [Concomitant]
  17. LACTULOSE [Concomitant]

REACTIONS (25)
  - BUNDLE BRANCH BLOCK [None]
  - CANDIDIASIS [None]
  - CHEST PAIN [None]
  - DECREASED APPETITE [None]
  - DEHYDRATION [None]
  - DIVERTICULUM [None]
  - GINGIVAL ULCERATION [None]
  - HYPOTENSION [None]
  - LUNG DISORDER [None]
  - MITRAL VALVE INCOMPETENCE [None]
  - NAUSEA [None]
  - NEOPLASM [None]
  - OVARIAN CYST [None]
  - PAIN IN JAW [None]
  - PERICARDIAL EFFUSION [None]
  - PYREXIA [None]
  - RECTAL HAEMORRHAGE [None]
  - RED BLOOD CELL SEDIMENTATION RATE INCREASED [None]
  - SINUS TACHYCARDIA [None]
  - STOMATITIS [None]
  - TRICUSPID VALVE INCOMPETENCE [None]
  - UTERINE LEIOMYOMA [None]
  - VAGINAL HAEMORRHAGE [None]
  - VOMITING [None]
  - WEIGHT DECREASED [None]
